FAERS Safety Report 9792507 (Version 1)
Quarter: 2014Q1

REPORT INFORMATION
  Report Type: Spontaneous
  Country: US (occurrence: US)
  Receive Date: 20140102
  Receipt Date: 20140102
  Transmission Date: 20141002
  Serious: No
  Sender: FDA-Public Use
  Company Number: US-BAYER-2013-158724

PATIENT
  Age: 78 Year
  Sex: Male

DRUGS (1)
  1. FINACEA [Suspect]
     Indication: ROSACEA
     Dosage: ONCE A DAY THIN APPLICATION IN THE MORNING

REACTIONS (2)
  - Burning sensation [Unknown]
  - Pruritus [Unknown]
